FAERS Safety Report 16961303 (Version 1)
Quarter: 2019Q4

REPORT INFORMATION
  Report Type: Report from Study
  Country: US (occurrence: US)
  Receive Date: 20191025
  Receipt Date: 20191025
  Transmission Date: 20200122
  Serious: Yes (Other)
  Sender: FDA-Public Use
  Company Number: US-PFIZER INC-2019460133

PATIENT

DRUGS (5)
  1. DOXYCYCLINE HYCLATE. [Suspect]
     Active Substance: DOXYCYCLINE HYCLATE
     Dosage: 255 MG, (PROCEDURE: 2, INSTILLATION: 1)
     Route: 042
  2. DOXYCYCLINE HYCLATE. [Suspect]
     Active Substance: DOXYCYCLINE HYCLATE
     Indication: SCLEROTHERAPY
     Dosage: 300 MG, (PROCEDURE: 1, INSTILLATION: 1)
     Route: 042
  3. DOXYCYCLINE HYCLATE. [Suspect]
     Active Substance: DOXYCYCLINE HYCLATE
     Dosage: 150 MG, (PROCEDURE: 2, INSTILLATION: 2)
     Route: 042
  4. DOXYCYCLINE HYCLATE. [Suspect]
     Active Substance: DOXYCYCLINE HYCLATE
     Dosage: 150 MG, (PROCEDURE: 2, INSTILLATION: 2)
     Route: 042
  5. DOXYCYCLINE HYCLATE. [Suspect]
     Active Substance: DOXYCYCLINE HYCLATE
     Dosage: 90 MG, (PROCEDURE: 3, INSTILLATION: 1)
     Route: 042

REACTIONS (3)
  - Metabolic acidosis [Recovered/Resolved]
  - Haemolytic anaemia [Recovered/Resolved]
  - Hypoglycaemia [Recovered/Resolved]
